FAERS Safety Report 7171447-8 (Version None)
Quarter: 2010Q4

REPORT INFORMATION
  Report Type: 
  Country: None (occurrence: None)
  Receive Date: 20101123
  Receipt Date: 20100927
  Transmission Date: 20110411
  Serious: No
  Sender: FDA-Public Use
  Company Number: 019470

PATIENT
  Sex: Male
  Weight: 65.8 kg

DRUGS (4)
  1. CIMZIA [Suspect]
     Indication: CROHN'S DISEASE
     Dosage: (2 SHOTS; LOADING DOSE SUCUTANEOUS) ; (2 SHOTS; DUE ON 07-OCT-2010 SUBCUTANEOUS)
     Route: 058
     Dates: start: 20100812, end: 20100909
  2. ENTOCORT EC [Concomitant]
  3. ASACOL [Concomitant]
  4. NICODERM [Concomitant]

REACTIONS (3)
  - ACNE [None]
  - DECREASED APPETITE [None]
  - FATIGUE [None]
